FAERS Safety Report 14385836 (Version 2)
Quarter: 2018Q1

REPORT INFORMATION
  Report Type: Report from Study
  Country: None (occurrence: BR)
  Receive Date: 20180115
  Receipt Date: 20180208
  Transmission Date: 20180509
  Serious: Yes (Hospitalization)
  Sender: FDA-Public Use
  Company Number: BR-ABBVIE-16P-020-1820523-00

PATIENT
  Age: 57 Year
  Sex: Male
  Weight: 64.8 kg

DRUGS (34)
  1. ENFUVIRTIDE. [Concomitant]
     Active Substance: ENFUVIRTIDE
     Indication: HIV INFECTION
     Dates: start: 20161010
  2. ETRAVIRINE [Concomitant]
     Active Substance: ETRAVIRINE
     Dosage: 400 MG DAILY
     Route: 048
     Dates: start: 20160920, end: 20161006
  3. INSULIN [Concomitant]
     Active Substance: INSULIN NOS
     Indication: PRODUCT USED FOR UNKNOWN INDICATION
     Dates: start: 201505, end: 20160930
  4. OMEPRAZOLE. [Concomitant]
     Active Substance: OMEPRAZOLE
     Indication: PRODUCT USED FOR UNKNOWN INDICATION
     Dates: end: 20161003
  5. RITONAVIR. [Suspect]
     Active Substance: RITONAVIR
     Route: 048
     Dates: start: 20160920, end: 20161006
  6. SODIUM BICARBONATE. [Concomitant]
     Active Substance: SODIUM BICARBONATE
     Indication: PRODUCT USED FOR UNKNOWN INDICATION
  7. FENOTEROL [Concomitant]
     Active Substance: FENOTEROL
     Indication: PRODUCT USED FOR UNKNOWN INDICATION
     Dates: start: 20160930, end: 20160930
  8. GSK3684934 [Concomitant]
     Active Substance: INVESTIGATIONAL PRODUCT
     Route: 048
     Dates: start: 20160920, end: 20161006
  9. DARUNAVIR [Concomitant]
     Active Substance: DARUNAVIR
     Indication: HIV INFECTION
     Route: 048
     Dates: start: 20160721, end: 20160913
  10. DARUNAVIR [Concomitant]
     Active Substance: DARUNAVIR
     Route: 048
     Dates: start: 20160920, end: 20161006
  11. DOLUTEGRAVIR [Concomitant]
     Active Substance: DOLUTEGRAVIR
     Indication: HIV INFECTION
     Route: 048
     Dates: start: 20160721, end: 20160913
  12. SPIRONOLACTONE. [Concomitant]
     Active Substance: SPIRONOLACTONE
     Indication: PRODUCT USED FOR UNKNOWN INDICATION
     Dates: start: 201505, end: 20160930
  13. CALCIUM GLUCONATE. [Concomitant]
     Active Substance: CALCIUM GLUCONATE
     Indication: PRODUCT USED FOR UNKNOWN INDICATION
  14. CLORTALIDONE [Concomitant]
     Indication: PRODUCT USED FOR UNKNOWN INDICATION
     Dates: start: 20160930, end: 20161130
  15. NORMAL SALINE [Concomitant]
     Active Substance: SODIUM CHLORIDE
     Indication: PRODUCT USED FOR UNKNOWN INDICATION
  16. RITONAVIR. [Suspect]
     Active Substance: RITONAVIR
     Indication: HIV INFECTION
     Route: 048
     Dates: start: 20160721, end: 20160913
  17. BAKTAR [Concomitant]
     Active Substance: SULFAMETHOXAZOLE\TRIMETHOPRIM
     Dates: start: 20160926
  18. NPH INSULIN [Concomitant]
     Active Substance: INSULIN BEEF
     Indication: PRODUCT USED FOR UNKNOWN INDICATION
     Dates: start: 201105
  19. SULFAMETHOXAZOLE AND TRIMETHOPRIM [Concomitant]
     Active Substance: SULFAMETHOXAZOLE\TRIMETHOPRIM
     Indication: PRODUCT USED FOR UNKNOWN INDICATION
     Dates: start: 20160926
  20. FUROSEMIDE. [Concomitant]
     Active Substance: FUROSEMIDE
     Indication: PRODUCT USED FOR UNKNOWN INDICATION
     Dates: start: 20160930, end: 20160930
  21. DOLUTEGRAVIR [Concomitant]
     Active Substance: DOLUTEGRAVIR
     Route: 048
     Dates: start: 20160920, end: 20161006
  22. AAS [Concomitant]
     Active Substance: ASPIRIN
     Indication: PRODUCT USED FOR UNKNOWN INDICATION
     Dates: start: 201505
  23. FOSTEMSAVIR [Concomitant]
     Active Substance: FOSTEMSAVIR TROMETHAMINE
     Indication: HIV INFECTION
     Route: 048
     Dates: start: 20160721, end: 20161005
  24. RITONAVIR. [Suspect]
     Active Substance: RITONAVIR
     Route: 048
     Dates: start: 20161010
  25. GSK3684934 [Concomitant]
     Active Substance: INVESTIGATIONAL PRODUCT
     Indication: HIV INFECTION
     Route: 048
     Dates: start: 20160721, end: 20160913
  26. DARUNAVIR [Concomitant]
     Active Substance: DARUNAVIR
     Route: 048
     Dates: start: 20161010
  27. ETRAVIRINE [Concomitant]
     Active Substance: ETRAVIRINE
     Indication: HIV INFECTION
     Dosage: 400 MG  DAILY
     Route: 048
     Dates: start: 20160721, end: 20160913
  28. ETRAVIRINE [Concomitant]
     Active Substance: ETRAVIRINE
     Dosage: 400 MG DAILY
     Route: 048
     Dates: start: 20161010
  29. DOLUTEGRAVIR [Concomitant]
     Active Substance: DOLUTEGRAVIR
     Route: 048
     Dates: start: 20161010, end: 20161108
  30. SODIUM POLYSTYRENE SULFONATE. [Concomitant]
     Active Substance: SODIUM POLYSTYRENE SULFONATE
     Indication: PRODUCT USED FOR UNKNOWN INDICATION
  31. GSK3684934 [Concomitant]
     Active Substance: INVESTIGATIONAL PRODUCT
     Route: 048
     Dates: start: 20161010
  32. AMLODIPINE [Concomitant]
     Active Substance: AMLODIPINE BESYLATE
     Indication: PRODUCT USED FOR UNKNOWN INDICATION
     Dates: start: 20160930, end: 20161213
  33. ENALAPRIL [Concomitant]
     Active Substance: ENALAPRIL
     Indication: PRODUCT USED FOR UNKNOWN INDICATION
     Dates: start: 201505, end: 20160930
  34. BAKTAR [Concomitant]
     Active Substance: SULFAMETHOXAZOLE\TRIMETHOPRIM
     Indication: PRODUCT USED FOR UNKNOWN INDICATION
     Dates: end: 20160925

REACTIONS (2)
  - Renal impairment [Recovered/Resolved]
  - Acute kidney injury [Recovered/Resolved]

NARRATIVE: CASE EVENT DATE: 20160912
